FAERS Safety Report 14821233 (Version 2)
Quarter: 2018Q3

REPORT INFORMATION
  Report Type: Spontaneous
  Country: US (occurrence: US)
  Receive Date: 20180427
  Receipt Date: 20180706
  Transmission Date: 20181010
  Serious: No
  Sender: FDA-Public Use
  Company Number: US-009507513-1804USA011983

PATIENT
  Sex: Female

DRUGS (1)
  1. GANIRELIX ACETATE INJECTION [Suspect]
     Active Substance: GANIRELIX ACETATE
     Indication: ANOVULATORY CYCLE
     Dosage: 0.25 MG, ONCE DAILY

REACTIONS (1)
  - Maternal exposure before pregnancy [Recovered/Resolved]
